FAERS Safety Report 11263184 (Version 2)
Quarter: 2015Q3

REPORT INFORMATION
  Report Type: Report from Study
  Country: IT (occurrence: IT)
  Receive Date: 20150711
  Receipt Date: 20150715
  Transmission Date: 20151125
  Serious: Yes (Hospitalization)
  Sender: FDA-Public Use
  Company Number: IT-ROCHE-1589492

PATIENT
  Age: 82 Year
  Sex: Female
  Weight: 64 kg

DRUGS (7)
  1. CARDIOASPIRINA [Concomitant]
     Active Substance: ASPIRIN
     Dosage: 1CP/DAY
     Route: 065
     Dates: start: 20120716
  2. LANSOPRAZOLE. [Concomitant]
     Active Substance: LANSOPRAZOLE
     Indication: GASTROOESOPHAGEAL REFLUX DISEASE
     Dosage: 1CP/DAY
     Route: 065
     Dates: start: 19870515
  3. ZOFRAN [Concomitant]
     Active Substance: ONDANSETRON HYDROCHLORIDE
     Indication: NAUSEA
     Dosage: 1 CP/DAY
     Route: 065
     Dates: start: 20120717
  4. VALSARTAN HCTZ [Concomitant]
     Active Substance: HYDROCHLOROTHIAZIDE\VALSARTAN
     Indication: HYPERTENSION
     Dosage: 160 MG/12.5 MG, 1CP/DAY
     Route: 065
     Dates: start: 19900919
  5. ATORVASTATIN [Concomitant]
     Active Substance: ATORVASTATIN
     Indication: HYPERLIPIDAEMIA
     Dosage: 1CP/DAY
     Route: 065
     Dates: start: 20120703
  6. VISMODEGIB [Suspect]
     Active Substance: VISMODEGIB
     Indication: BASAL CELL CARCINOMA
     Dosage: LAST DOSE ON 13/JUL/2012 PRIOR TO SAE
     Route: 048
     Dates: start: 20120517
  7. KETOPROFEN. [Concomitant]
     Active Substance: KETOPROFEN
     Indication: OSTEOARTHRITIS
     Dosage: 1 CAPSULE AT THE NEED.
     Route: 065
     Dates: start: 20070306

REACTIONS (1)
  - Acute kidney injury [Unknown]

NARRATIVE: CASE EVENT DATE: 20120717
